FAERS Safety Report 9163398 (Version 1)
Quarter: 2012Q4

REPORT INFORMATION
  Report Type: 
  Country: US (occurrence: US)
  Receive Date: 20121211
  Receipt Date: 20121211
  Transmission Date: 20130627
  Serious: Yes (Other)
  Sender: FDA-Public Use
  Company Number: US-RB-047392-12

PATIENT
  Age: 44 Year
  Sex: Female

DRUGS (2)
  1. MUCINEX [Suspect]
     Indication: PRODUCT USED FOR UNKNOWN INDICATION
     Dosage: 1 tablet / 12 hours for 2 days totaling 3 Mucinex Tablets. Last on 02-DEC-2012.
     Route: 048
     Dates: start: 20121201
  2. VITAMIN D [Suspect]
     Indication: PRODUCT USED FOR UNKNOWN INDICATION
     Dates: start: 20121202

REACTIONS (5)
  - Lip swelling [Not Recovered/Not Resolved]
  - Oral pruritus [Recovered/Resolved]
  - Rash [Not Recovered/Not Resolved]
  - Aphonia [Not Recovered/Not Resolved]
  - Hypersensitivity [Not Recovered/Not Resolved]
